FAERS Safety Report 23799134 (Version 2)
Quarter: 2024Q2

REPORT INFORMATION
  Report Type: Spontaneous
  Country: FR (occurrence: FR)
  Receive Date: 20240430
  Receipt Date: 20240529
  Transmission Date: 20240715
  Serious: Yes (Death, Life-Threatening, Hospitalization, Other)
  Sender: FDA-Public Use
  Company Number: FR-VALIDUS PHARMACEUTICALS LLC-FR-VDP-2024-019231

PATIENT

DRUGS (21)
  1. FUROSEMIDE [Suspect]
     Active Substance: FUROSEMIDE
     Indication: Product used for unknown indication
     Dosage: 250 MG (FUROSEMIDE 500MG CP 250 MG MATIN)
     Route: 065
  2. LEVOFLOXACIN [Suspect]
     Active Substance: LEVOFLOXACIN
     Indication: Product used for unknown indication
     Dosage: UNK
     Route: 065
     Dates: start: 20240126
  3. CLOXACILLIN [Suspect]
     Active Substance: CLOXACILLIN
     Indication: Endocarditis
     Dosage: 14 G, QD
     Route: 042
     Dates: start: 20240129, end: 20240202
  4. CLOXACILLIN [Suspect]
     Active Substance: CLOXACILLIN
     Dosage: CLOXACILLIN STOPPED FOR 24 HOURS THEN RESTARTED AT HALF DOSE
     Route: 065
  5. CLOXACILLIN [Suspect]
     Active Substance: CLOXACILLIN
     Dosage: UNK
     Route: 065
     Dates: start: 20240115, end: 20240124
  6. HEPARIN CALCIUM [Suspect]
     Active Substance: HEPARIN CALCIUM
     Indication: Atrial fibrillation
     Dosage: 8750 IU, TID
     Route: 058
     Dates: start: 202312, end: 20240227
  7. GENTAMICIN SULFATE [Suspect]
     Active Substance: GENTAMICIN SULFATE
     Indication: Endocarditis
     Dosage: UNK
     Route: 065
  8. GENTAMICIN SULFATE [Suspect]
     Active Substance: GENTAMICIN SULFATE
     Dosage: UNK
     Route: 065
     Dates: start: 20240115, end: 20240124
  9. CEFAZOLIN [Suspect]
     Active Substance: CEFAZOLIN
     Indication: Product used for unknown indication
     Dosage: 250 MG, BID (CEFAZOLIN PERF 250 MG EVERY 12H TO BE PASSED IN 00:30H, IV)
     Route: 042
     Dates: start: 20240124, end: 20240126
  10. AMLODIPINE BESYLATE [Suspect]
     Active Substance: AMLODIPINE BESYLATE
     Indication: Product used for unknown indication
     Dosage: 10 MG (AMLODIPINE CAPSULE 10 MG MATIN)
     Route: 065
  11. KEPPRA XR [Concomitant]
     Active Substance: LEVETIRACETAM
     Indication: Product used for unknown indication
     Dosage: UNK
     Route: 065
     Dates: start: 202402, end: 20240206
  12. BISOPROLOL FUMARATE [Concomitant]
     Active Substance: BISOPROLOL FUMARATE
     Indication: Product used for unknown indication
     Dosage: CP 5 MG MATIN
     Route: 065
     Dates: end: 20240129
  13. LANSOPRAZOLE [Concomitant]
     Active Substance: LANSOPRAZOLE
     Indication: Product used for unknown indication
     Dosage: CP ORODISP 30 MG MATIN
     Route: 065
     Dates: end: 20240227
  14. LEVOTHYROXINE [Concomitant]
     Active Substance: LEVOTHYROXINE\LEVOTHYROXINE SODIUM
     Indication: Product used for unknown indication
     Dosage: CP 100 MCG MATIN
     Route: 065
  15. ATORVASTATIN [Concomitant]
     Active Substance: ATORVASTATIN
     Indication: Product used for unknown indication
     Dosage: CP 40 MG SOIR
     Route: 065
     Dates: start: 20230222
  16. SODIUM BICARBONATE [Concomitant]
     Active Substance: SODIUM BICARBONATE
     Indication: Product used for unknown indication
     Dosage: 1000 MG MORNING MIDNIGHT
     Route: 065
     Dates: end: 20240223
  17. CALCIUM CARBONATE [Concomitant]
     Active Substance: CALCIUM CARBONATE
     Indication: Product used for unknown indication
     Dosage: 1.54G SACHET 1 SACHET MORNING MIDNIGHT
     Route: 065
     Dates: end: 20240129
  18. CETIRIZINE HYDROCHLORIDE [Concomitant]
     Active Substance: CETIRIZINE HYDROCHLORIDE
     Indication: Product used for unknown indication
     Dosage: CP 10 MG MATIN
     Route: 065
     Dates: end: 20240229
  19. CLOBETASOL PROPIONATE [Concomitant]
     Active Substance: CLOBETASOL PROPIONATE
     Indication: Product used for unknown indication
     Dosage: 1 APPLICATION MORNING
     Route: 065
     Dates: end: 20240202
  20. DEXTROSE [Concomitant]
     Active Substance: DEXTROSE\DEXTROSE MONOHYDRATE
     Indication: Product used for unknown indication
     Dosage: OVER 24H 500 ML/24H CONTINUOUSLY
     Route: 042
     Dates: end: 20240223
  21. ACETAMINOPHEN [Concomitant]
     Active Substance: ACETAMINOPHEN
     Indication: Product used for unknown indication
     Dosage: UNK
     Route: 048
     Dates: end: 20240227

REACTIONS (11)
  - Pulmonary oedema [Fatal]
  - Respiratory distress [Fatal]
  - Endocarditis [Fatal]
  - Retroperitoneal haemorrhage [Unknown]
  - Shock haemorrhagic [Unknown]
  - Staphylococcal bacteraemia [Unknown]
  - Arthritis bacterial [Unknown]
  - Cerebral haematoma [Unknown]
  - Head injury [Unknown]
  - Encephalopathy [Unknown]
  - Antibiotic level above therapeutic [Unknown]

NARRATIVE: CASE EVENT DATE: 20240101
